FAERS Safety Report 9409348 (Version 1)
Quarter: 2013Q3

REPORT INFORMATION
  Report Type: Spontaneous
  Country: US (occurrence: US)
  Receive Date: 20130719
  Receipt Date: 20130719
  Transmission Date: 20140515
  Serious: No
  Sender: FDA-Public Use
  Company Number: US-PFIZER INC-2013210831

PATIENT
  Age: 52 Year
  Sex: Female
  Weight: 90.7 kg

DRUGS (10)
  1. LYRICA [Suspect]
     Indication: HERPES ZOSTER
     Dosage: 150 MG, 2X/DAY
     Route: 048
     Dates: start: 2007
  2. LYRICA [Suspect]
     Indication: FIBROMYALGIA
  3. CELEXA [Concomitant]
     Dosage: 20 MG, 1X/DAY
  4. CLONAZEPAM [Concomitant]
     Dosage: 1 MG, 1X/DAY
  5. FLEXERIL [Concomitant]
     Indication: MUSCLE SPASMS
     Dosage: 10 MG, AS NEEDED
  6. HYDROCHLOROTHIAZIDE [Concomitant]
     Indication: HYPERTENSION
     Dosage: 25 MG, 1X/DAY
  7. LORTAB [Concomitant]
     Dosage: 7.55 MG, 3X/DAY
  8. MORPHINE SULFATE [Concomitant]
     Dosage: 30 MG, 3X/DAY
  9. NEXIUM [Concomitant]
     Dosage: 40 MG, 2X/DAY
  10. ZOFRAN [Concomitant]
     Dosage: 4 MG, UNK

REACTIONS (4)
  - Drug ineffective [Unknown]
  - Apathy [Unknown]
  - Contusion [Unknown]
  - Pain [Unknown]
